FAERS Safety Report 12870820 (Version 1)
Quarter: 2016Q4

REPORT INFORMATION
  Report Type: Spontaneous
  Country: US (occurrence: US)
  Receive Date: 20161021
  Receipt Date: 20161021
  Transmission Date: 20170207
  Serious: No
  Sender: FDA-Public Use
  Company Number: None

PATIENT
  Age: 72 Year
  Sex: Female
  Weight: 65.83 kg

DRUGS (9)
  1. PRAVASTATIN. [Concomitant]
     Active Substance: PRAVASTATIN
  2. MACROBID [Concomitant]
     Active Substance: NITROFURANTOIN\NITROFURANTOIN MONOHYDRATE
  3. VITAMIN C [Concomitant]
     Active Substance: ASCORBIC ACID
  4. VITAMIN B AND D [Concomitant]
  5. CALCIUM [Concomitant]
     Active Substance: CALCIUM
  6. ENALAPREL [Concomitant]
  7. HYOSYAMINE SULFATE [Suspect]
     Active Substance: HYOSCYAMINE
     Indication: IRRITABLE BOWEL SYNDROME
     Dosage: ?          QUANTITY::2 PILLS; TWICE DAILY; MOUTH?
     Route: 048
     Dates: start: 20160714, end: 20161004
  8. OSPHENA [Concomitant]
     Active Substance: OSPEMIFENE
  9. HYOSYAMIN SULFATE [Concomitant]

REACTIONS (1)
  - Product quality issue [None]
